FAERS Safety Report 17215629 (Version 1)
Quarter: 2019Q4

REPORT INFORMATION
  Report Type: Spontaneous
  Country: NL (occurrence: NL)
  Receive Date: 20191230
  Receipt Date: 20191230
  Transmission Date: 20200122
  Serious: Yes (Other)
  Sender: FDA-Public Use
  Company Number: NL-MYLANLABS-2019M1130596

PATIENT
  Sex: Male
  Weight: 72 kg

DRUGS (6)
  1. COLECALCIFEROL [Concomitant]
     Active Substance: CHOLECALCIFEROL
     Dosage: 1D1T
  2. DICLOFENAC [Concomitant]
     Active Substance: DICLOFENAC
     Dosage: ZO NODIG 1D1T
  3. OMEPRAZOL                          /00661201/ [Concomitant]
     Active Substance: OMEPRAZOLE
     Dosage: ZO NODIG 1D1T
  4. SIMVASTATINE [Concomitant]
     Active Substance: SIMVASTATIN
     Dosage: A 1T
  5. HYDROCHLOROTHIAZIDE. [Suspect]
     Active Substance: HYDROCHLOROTHIAZIDE
     Indication: HYPERTENSION
     Dosage: 1D1T
     Dates: start: 20190410, end: 20191017
  6. COMBODART [Concomitant]
     Active Substance: DUTASTERIDE\TAMSULOSIN
     Dosage: 1D1T

REACTIONS (2)
  - Condition aggravated [Recovering/Resolving]
  - Urinary retention [Recovering/Resolving]
